FAERS Safety Report 17273649 (Version 2)
Quarter: 2020Q1

REPORT INFORMATION
  Report Type: Spontaneous
  Country: FR (occurrence: FR)
  Receive Date: 20200115
  Receipt Date: 20200219
  Transmission Date: 20200409
  Serious: Yes (Other)
  Sender: FDA-Public Use
  Company Number: FR-JNJFOC-20200111478

PATIENT

DRUGS (2)
  1. HALDOL DECANOAS [Suspect]
     Active Substance: HALOPERIDOL DECANOATE
     Indication: PRODUCT USED FOR UNKNOWN INDICATION
     Dosage: 50 MG/ML, SOLUTION FOR INJECTION
     Route: 065
  2. HALDOL [Suspect]
     Active Substance: HALOPERIDOL
     Indication: PRODUCT USED FOR UNKNOWN INDICATION
     Dosage: 5 MG/ML, SOLUTION AMPOULE FOR INJECTION
     Route: 065

REACTIONS (4)
  - Product primary packaging issue [Unknown]
  - Product dispensing error [Unknown]
  - Product appearance confusion [Unknown]
  - Intercepted product prescribing error [Unknown]
